FAERS Safety Report 9093213 (Version 1)
Quarter: 2013Q1

REPORT INFORMATION
  Report Type: Spontaneous
  Country: IT (occurrence: IT)
  Receive Date: 20130201
  Receipt Date: 20130201
  Transmission Date: 20140127
  Serious: Yes (Hospitalization)
  Sender: FDA-Public Use
  Company Number: IT-PFIZER INC-2013039865

PATIENT
  Age: 47 Year
  Sex: Female

DRUGS (11)
  1. ALPRAZOLAM [Suspect]
     Route: 048
  2. ALPRAZOLAM [Suspect]
     Dosage: 20 DF, TOTAL DOSE
     Route: 048
     Dates: start: 20120912, end: 20120912
  3. ZOLPIDEM TARTRATE [Suspect]
     Route: 048
  4. ZOLPIDEM TARTRATE [Suspect]
     Dosage: 30 DF, TOTAL DOSE
     Route: 048
     Dates: start: 20120912, end: 20120912
  5. LITHIUM CARBONATE [Concomitant]
  6. PREGABALIN [Concomitant]
  7. VALPROATE SODIUM/VALPROIC ACID [Concomitant]
  8. VENLAFAXINE HYDROCHLORIDE [Concomitant]
  9. CLOZAPINE [Concomitant]
  10. LEVOTHYROXINE SODIUM [Concomitant]
  11. OMEGA-3 TRIGLYCERIDES [Concomitant]

REACTIONS (3)
  - Overdose [Recovering/Resolving]
  - Sopor [Recovering/Resolving]
  - Toxicity to various agents [Recovering/Resolving]
